FAERS Safety Report 18756434 (Version 7)
Quarter: 2023Q1

REPORT INFORMATION
  Report Type: Spontaneous
  Country: US (occurrence: US)
  Receive Date: 20210119
  Receipt Date: 20230221
  Transmission Date: 20230417
  Serious: Yes (Other)
  Sender: FDA-Public Use
  Company Number: US-PFIZER INC-2021040202

PATIENT
  Age: 81 Year
  Sex: Male
  Weight: 74.84 kg

DRUGS (3)
  1. XALKORI [Suspect]
     Active Substance: CRIZOTINIB
     Indication: Lung carcinoma cell type unspecified stage IV
     Dosage: 250 MG, 2X/DAY
     Dates: start: 2015
  2. LISINOPRIL [Concomitant]
     Active Substance: LISINOPRIL
     Indication: Blood pressure abnormal
     Dosage: UNK
  3. METOPROLOL [Concomitant]
     Active Substance: METOPROLOL
     Indication: Blood pressure abnormal
     Dosage: UNK

REACTIONS (5)
  - Pulmonary oedema [Unknown]
  - Feeling abnormal [Unknown]
  - Hypogeusia [Recovered/Resolved]
  - Anosmia [Recovered/Resolved]
  - Fatigue [Unknown]

NARRATIVE: CASE EVENT DATE: 20180101
